FAERS Safety Report 4963985-0 (Version None)
Quarter: 2006Q2

REPORT INFORMATION
  Report Type: 
  Country: None (occurrence: None)
  Receive Date: 20060405
  Receipt Date: 20050519
  Transmission Date: 20061013
  Serious: Yes (Death, Hospitalization)
  Sender: FDA-Public Use
  Company Number: US-MERCK-0505USA02327

PATIENT
  Age: 48 Year
  Sex: Female
  Weight: 121 kg

DRUGS (1)
  1. VIOXX [Suspect]
     Indication: ARTHRALGIA
     Route: 048
     Dates: start: 19991104, end: 20030529

REACTIONS (2)
  - CORONARY ARTERY THROMBOSIS [None]
  - HYSTERECTOMY [None]
